FAERS Safety Report 12269757 (Version 1)
Quarter: 2016Q2

REPORT INFORMATION
  Report Type: Report from Study
  Country: ES (occurrence: ES)
  Receive Date: 20160414
  Receipt Date: 20160414
  Transmission Date: 20160815
  Serious: Yes (Other)
  Sender: FDA-Public Use
  Company Number: ES-BAXTER-2016BAX019318

PATIENT

DRUGS (9)
  1. VINCRISTINE [Suspect]
     Active Substance: VINCRISTINE
     Route: 065
  2. DOXORUBICIN [Suspect]
     Active Substance: DOXORUBICIN
     Indication: BURKITT^S LYMPHOMA
     Route: 065
  3. GENOXAL [Suspect]
     Active Substance: CYCLOPHOSPHAMIDE
     Indication: BURKITT^S LYMPHOMA
     Route: 065
  4. VINCRISTINE [Suspect]
     Active Substance: VINCRISTINE
     Indication: BURKITT^S LYMPHOMA
     Route: 065
  5. METHOTREXATE [Suspect]
     Active Substance: METHOTREXATE
     Indication: BURKITT^S LYMPHOMA
     Route: 065
  6. CYTARABINE. [Suspect]
     Active Substance: CYTARABINE
     Indication: BURKITT^S LYMPHOMA
     Route: 065
  7. RITUXIMAB [Suspect]
     Active Substance: RITUXIMAB
     Indication: BURKITT^S LYMPHOMA
     Route: 065
  8. RALTEGRAVIR. [Concomitant]
     Active Substance: RALTEGRAVIR
     Indication: HIV INFECTION
     Route: 065
  9. TRONOXAL 1G INYECTABLE [Suspect]
     Active Substance: IFOSFAMIDE
     Indication: BURKITT^S LYMPHOMA
     Route: 065

REACTIONS (1)
  - Skin toxicity [Unknown]
